FAERS Safety Report 4508983-6 (Version None)
Quarter: 2004Q4

REPORT INFORMATION
  Report Type: 
  Country: None (occurrence: None)
  Receive Date: 20041122
  Receipt Date: 20041122
  Transmission Date: 20050328
  Serious: Yes (Hospitalization)
  Sender: FDA-Public Use
  Company Number: None

PATIENT
  Age: 74 Year
  Sex: Male
  Weight: 110 kg

DRUGS (2)
  1. MORPHINE [Suspect]
     Dosage: 30 MG BID ORAL
     Route: 048
     Dates: start: 20040308, end: 20040827
  2. ACETAMINOPHEN AND CODEINE PHOSPHATE #3 [Suspect]
     Dosage: 1-2 TABLETS Q6H PRN ORAL
     Route: 048
     Dates: start: 20040308, end: 20040827

REACTIONS (3)
  - CONSTIPATION [None]
  - NAUSEA [None]
  - VOMITING [None]
